FAERS Safety Report 8003145-2 (Version None)
Quarter: 2011Q4

REPORT INFORMATION
  Report Type: 
  Country: None (occurrence: None)
  Receive Date: 20111222
  Receipt Date: 20111213
  Transmission Date: 20120403
  Serious: Yes (Other)
  Sender: FDA-Public Use
  Company Number: PHEH2011US011585

PATIENT
  Sex: Female

DRUGS (9)
  1. ALLOPURINOL [Concomitant]
     Dosage: UNK UKN, UNK
  2. TOPROL-XL [Concomitant]
     Dosage: 50 MGX 1 DAY
  3. CEREFOLIN [Concomitant]
     Dosage: UNK UKN, UNK
  4. SYNTHROID [Concomitant]
     Dosage: UNK UKN, UNK
  5. EXELON [Suspect]
     Dosage: 4.6 MG, 1 PATCH  DAILY
     Route: 062
  6. SIMVASTATIN [Concomitant]
     Dosage: UNK UKN, UNK
  7. NAMENDA [Concomitant]
     Dosage: UNK UKN, UNK
  8. PEPCID [Concomitant]
     Dosage: UNK UKN, UNK
  9. COUMADIN [Concomitant]
     Dosage: 2.5 MG, 1X DAY

REACTIONS (4)
  - APPLICATION SITE VESICLES [None]
  - APPLICATION SITE BURN [None]
  - INTERNATIONAL NORMALISED RATIO INCREASED [None]
  - DRUG INTERACTION [None]
